FAERS Safety Report 4875806-5 (Version None)
Quarter: 2006Q1

REPORT INFORMATION
  Report Type: 
  Country: None (occurrence: None)
  Receive Date: 20060106
  Receipt Date: 20051223
  Transmission Date: 20060701
  Serious: Yes (Death)
  Sender: FDA-Public Use
  Company Number: 220627

PATIENT
  Age: 27 Year
  Sex: Female

DRUGS (3)
  1. XOLAIR [Suspect]
     Indication: DRUG USE FOR UNKNOWN INDICATION
     Dosage: SUBCUTANEOUS
     Route: 058
  2. CORTICOSTEROID NOS (CORTICOSTEROID NOS) [Concomitant]
  3. BETA-2 AGOINST NOS (BETA-2 AGOINT NOS) [Concomitant]

REACTIONS (1)
  - DEATH [None]
